FAERS Safety Report 15748065 (Version 4)
Quarter: 2019Q1

REPORT INFORMATION
  Report Type: Spontaneous
  Country: JP (occurrence: JP)
  Receive Date: 20181221
  Receipt Date: 20190320
  Transmission Date: 20190417
  Serious: Yes (Hospitalization, Disabling, Other)
  Sender: FDA-Public Use
  Company Number: JP-BRISTOL-MYERS SQUIBB COMPANY-BMS-2018-120350

PATIENT
  Age: 78 Year
  Sex: Male
  Weight: 59 kg

DRUGS (4)
  1. OPDIVO [Suspect]
     Active Substance: NIVOLUMAB
     Indication: METASTATIC RENAL CELL CARCINOMA
     Dosage: 165 MG/DAY
     Route: 041
     Dates: start: 20170331, end: 20170331
  2. OPDIVO [Suspect]
     Active Substance: NIVOLUMAB
     Indication: PRODUCT USED FOR UNKNOWN INDICATION
     Dosage: 163 MG/DAY(04/28/2017,05/12,05/26,06/09,06/23,07/07,07/21,08/04,08/18,09/29,10/13,10/27)
     Route: 041
     Dates: start: 20170428, end: 20171027
  3. INLYTA [Concomitant]
     Active Substance: AXITINIB
     Indication: PRODUCT USED FOR UNKNOWN INDICATION
     Dosage: UNK
     Route: 065
     Dates: start: 20171127, end: 20171225
  4. OPDIVO [Suspect]
     Active Substance: NIVOLUMAB
     Indication: PRODUCT USED FOR UNKNOWN INDICATION
     Dosage: 162 MG/DAY
     Route: 041
     Dates: start: 20170414, end: 20170414

REACTIONS (4)
  - Rectal haemorrhage [Recovered/Resolved with Sequelae]
  - Malignant neoplasm progression [Unknown]
  - Constipation [Unknown]
  - Pneumonia [Recovering/Resolving]

NARRATIVE: CASE EVENT DATE: 20171027
